FAERS Safety Report 7807238-1 (Version None)
Quarter: 2011Q4

REPORT INFORMATION
  Report Type: 
  Country: None (occurrence: None)
  Receive Date: 20111011
  Receipt Date: 20111005
  Transmission Date: 20120403
  Serious: Yes (Other)
  Sender: FDA-Public Use
  Company Number: JP-PFIZER INC-2011238047

PATIENT
  Age: 42 Year
  Sex: Male

DRUGS (1)
  1. ALPRAZOLAM [Suspect]
     Dosage: 0.4 MG, 2X/DAY
     Route: 048
     Dates: end: 20040623

REACTIONS (3)
  - AGGRESSION [None]
  - ANGER [None]
  - MALAISE [None]
